FAERS Safety Report 5262961-0 (Version None)
Quarter: 2007Q1

REPORT INFORMATION
  Report Type: 
  Country: None (occurrence: None)
  Receive Date: 20070312
  Receipt Date: 20070301
  Transmission Date: 20070707
  Serious: Yes (Hospitalization, Other)
  Sender: FDA-Public Use
  Company Number: HQWYE084102JAN07

PATIENT
  Age: 79 Year
  Sex: Female

DRUGS (3)
  1. OSTELUC 200 [Suspect]
     Indication: LUMBAR VERTEBRAL FRACTURE
     Dosage: UNSPECIFIED
     Route: 048
     Dates: start: 20050303
  2. OTSUJITOU [Concomitant]
     Indication: CONSTIPATION
  3. SENNA LIQUID EXTRACT [Concomitant]
     Indication: CONSTIPATION

REACTIONS (2)
  - COLITIS COLLAGENOUS [None]
  - COLON CANCER [None]
